FAERS Safety Report 7313358-0 (Version None)
Quarter: 2011Q1

REPORT INFORMATION
  Report Type: 
  Country: None (occurrence: None)
  Receive Date: 20110217
  Receipt Date: 20110217
  Transmission Date: 20110831
  Serious: Yes (Disabling)
  Sender: FDA-Public Use
  Company Number: None

PATIENT
  Age: 44 Year
  Sex: Female
  Weight: 71.6683 kg

DRUGS (1)
  1. TOPAMAX [Suspect]
     Indication: HEADACHE
     Dosage: 25MG TWICE A DAY PO
     Route: 048
     Dates: start: 20110209, end: 20110215

REACTIONS (3)
  - IMPAIRED DRIVING ABILITY [None]
  - ABNORMAL SENSATION IN EYE [None]
  - VISION BLURRED [None]
